FAERS Safety Report 5624559-1 (Version None)
Quarter: 2008Q1

REPORT INFORMATION
  Report Type: 
  Country: None (occurrence: None)
  Receive Date: 20080213
  Receipt Date: 20080131
  Transmission Date: 20080703
  Serious: Yes (Other)
  Sender: FDA-Public Use
  Company Number: US-AMGEN-US263416

PATIENT
  Sex: Male

DRUGS (2)
  1. PROCRIT [Suspect]
     Indication: RENAL FAILURE CHRONIC
     Dates: start: 20040901
  2. IMMUNOSUPPRESSANTS [Concomitant]

REACTIONS (2)
  - BONE MARROW FAILURE [None]
  - THERAPEUTIC RESPONSE DECREASED [None]
